FAERS Safety Report 4366954-7 (Version None)
Quarter: 2004Q2

REPORT INFORMATION
  Report Type: 
  Country: None (occurrence: None)
  Receive Date: 20040527
  Receipt Date: 20040527
  Transmission Date: 20050107
  Serious: Yes (Hospitalization)
  Sender: FDA-Public Use
  Company Number: None

PATIENT
  Sex: Male
  Weight: 72.5755 kg

DRUGS (5)
  1. FUROSEMIDE [Suspect]
     Dosage: FUROSEMIDE QOD ORAL
     Route: 048
     Dates: start: 20040203, end: 20040213
  2. MIRAPEX [Concomitant]
  3. SINEMET [Concomitant]
  4. ATENOLOL [Concomitant]
  5. LISINOPRIL [Concomitant]

REACTIONS (5)
  - BLISTER [None]
  - DERMATITIS BULLOUS [None]
  - DERMATITIS EXFOLIATIVE [None]
  - PAIN [None]
  - STAPHYLOCOCCAL INFECTION [None]
